FAERS Safety Report 13911086 (Version 1)
Quarter: 2017Q3

REPORT INFORMATION
  Report Type: Spontaneous
  Country: US (occurrence: None)
  Receive Date: 20170828
  Receipt Date: 20170828
  Transmission Date: 20171127
  Serious: Yes (Life-Threatening)
  Sender: FDA-Public Use
  Company Number: None

PATIENT
  Age: 58 Year
  Sex: Female
  Weight: 72.57 kg

DRUGS (9)
  1. GEODON [Suspect]
     Active Substance: ZIPRASIDONE HYDROCHLORIDE\ZIPRASIDONE MESYLATE
     Indication: BIPOLAR DISORDER
     Dosage: CAPSULES 1 AM - 1 BEDTIME 1 - TWICE A DAY TAKE W FOOD + WATER
     Route: 048
     Dates: start: 20170509, end: 20170710
  2. METHADONE [Concomitant]
     Active Substance: METHADONE HYDROCHLORIDE
  3. ADVAIR HFA [Concomitant]
     Active Substance: FLUTICASONE PROPIONATE\SALMETEROL XINAFOATE
  4. DILIDID [Concomitant]
  5. TYLENOL EXTRA STRENGTH [Concomitant]
     Active Substance: ACETAMINOPHEN
  6. WOMENS MULTIVITAMINS W/CELLAGEN [Concomitant]
  7. NATURES BOUNTY GUMMIES [Concomitant]
  8. ATIVAN [Concomitant]
     Active Substance: LORAZEPAM
  9. ASPERCREME W/LIDOCANE [Concomitant]

REACTIONS (7)
  - Speech disorder [None]
  - Swollen tongue [None]
  - Peripheral swelling [None]
  - Restless legs syndrome [None]
  - Pain in extremity [None]
  - Rhinorrhoea [None]
  - Mania [None]

NARRATIVE: CASE EVENT DATE: 20170601
